FAERS Safety Report 9378440 (Version 1)
Quarter: 2013Q3

REPORT INFORMATION
  Report Type: Spontaneous
  Country: US (occurrence: US)
  Receive Date: 20130701
  Receipt Date: 20130701
  Transmission Date: 20140515
  Serious: Yes (Other)
  Sender: FDA-Public Use
  Company Number: US-JNJFOC-20130616993

PATIENT
  Sex: Female
  Weight: 104.33 kg

DRUGS (7)
  1. TYLENOL [Suspect]
     Route: 065
  2. TYLENOL [Suspect]
     Indication: PRODUCT USED FOR UNKNOWN INDICATION
     Route: 065
  3. SYNTHROID [Concomitant]
     Route: 065
  4. LEXAPRO [Concomitant]
     Route: 065
  5. WELLBUTRIN SR [Concomitant]
     Route: 065
  6. DILTIAZEM [Concomitant]
     Route: 065
  7. OMEPRAZOLE [Concomitant]
     Route: 065

REACTIONS (3)
  - Cyst [Unknown]
  - Liver disorder [Unknown]
  - Hepatic cyst [None]
